FAERS Safety Report 19000732 (Version 1)
Quarter: 2021Q1

REPORT INFORMATION
  Report Type: Spontaneous
  Country: US (occurrence: US)
  Receive Date: 20210312
  Receipt Date: 20210312
  Transmission Date: 20210420
  Serious: No
  Sender: FDA-Public Use
  Company Number: US-SA-2021SA075589

PATIENT
  Sex: Female

DRUGS (2)
  1. CLARITINE [Concomitant]
     Active Substance: LORATADINE
     Dosage: 10 MG
  2. ALLEGRA ALLERGY [Suspect]
     Active Substance: FEXOFENADINE HYDROCHLORIDE
     Dosage: 1 DF

REACTIONS (1)
  - Hypersensitivity [Unknown]
